FAERS Safety Report 7676959-6 (Version None)
Quarter: 2011Q3

REPORT INFORMATION
  Report Type: 
  Country: None (occurrence: None)
  Receive Date: 20110811
  Receipt Date: 20110808
  Transmission Date: 20111222
  Serious: Yes (Death, Hospitalization)
  Sender: FDA-Public Use
  Company Number: PHHY2011BR71454

PATIENT
  Sex: Male

DRUGS (3)
  1. EXELON [Suspect]
     Dosage: 6 MG, UNK
     Dates: end: 20080115
  2. EXELON [Suspect]
     Dosage: 3 MG, UNK
     Route: 062
     Dates: end: 20071214
  3. EXELON [Suspect]
     Dosage: 18 MG PATCH DAILY
     Dates: end: 20090123

REACTIONS (1)
  - DEATH [None]
